FAERS Safety Report 18685598 (Version 1)
Quarter: 2020Q4

REPORT INFORMATION
  Report Type: Spontaneous
  Country: US (occurrence: US)
  Receive Date: 20201231
  Receipt Date: 20201231
  Transmission Date: 20210114
  Serious: No
  Sender: FDA-Public Use
  Company Number: US-DRREDDYS-USA/USA/20/0130224

PATIENT

DRUGS (1)
  1. BUPRENORPHINE AND NALOXONE SUBLINGUAL FILM 2 MG/0.5 MG AND 8MG/2MG [Suspect]
     Active Substance: BUPRENORPHINE\NALOXONE
     Indication: PRODUCT USED FOR UNKNOWN INDICATION
     Route: 060

REACTIONS (7)
  - Rhinorrhoea [Unknown]
  - Abdominal pain [Unknown]
  - Anxiety [Unknown]
  - Heart rate increased [Unknown]
  - Product quality issue [Unknown]
  - Hyperhidrosis [Unknown]
  - Drug ineffective [Unknown]
